FAERS Safety Report 7352748-7 (Version None)
Quarter: 2011Q1

REPORT INFORMATION
  Report Type: 
  Country: None (occurrence: None)
  Receive Date: 20110315
  Receipt Date: 20110304
  Transmission Date: 20110831
  Serious: Yes (Other)
  Sender: FDA-Public Use
  Company Number: CA-ELI_LILLY_AND_COMPANY-CA201103001577

PATIENT
  Sex: Male
  Weight: 114.1 kg

DRUGS (18)
  1. CLONAZEPAM [Concomitant]
     Dosage: 2 MG, 2/D
  2. ATIVAN [Concomitant]
     Dosage: 1 MG, EACH MORNING
     Route: 048
  3. ZYPREXA [Suspect]
     Dosage: 5 MG, EACH MORNING
  4. LITHIUM CARBONATE [Concomitant]
     Dosage: 900 MG, EACH EVENING
     Route: 048
  5. SEROQUEL [Concomitant]
     Dosage: 100 MG, 2/D
     Route: 048
  6. ZYPREXA [Suspect]
     Dosage: 30 MG, DAILY (1/D)
     Route: 048
  7. ZOLOFT [Concomitant]
     Dosage: 50 MG, EACH MORNING
     Route: 048
  8. KEMADRIN [Concomitant]
     Dosage: 5 MG, 3/D
     Route: 048
  9. SEROQUEL [Concomitant]
     Dosage: 400 MG, EACH EVENING
     Route: 048
  10. ZYPREXA [Suspect]
     Indication: SCHIZOPHRENIA, PARANOID TYPE
     Dosage: 10 MG, EACH EVENING
     Route: 048
     Dates: start: 19980401
  11. SEROQUEL [Concomitant]
     Dosage: 100 MG, AS NEEDED
     Route: 048
  12. CLONAZEPAM [Concomitant]
     Dosage: 1 MG, AS NEEDED
     Route: 048
  13. ZYPREXA [Suspect]
     Dosage: 25 MG, EACH EVENING
     Route: 048
  14. SEROQUEL [Concomitant]
     Dosage: 50 MG, 2/D
     Route: 048
  15. ASPIRIN [Concomitant]
     Dosage: 81 MG, DAILY (1/D)
     Route: 048
  16. ZYPREXA [Suspect]
     Dosage: 15 MG, EACH EVENING
     Route: 048
  17. SEROQUEL [Concomitant]
     Dosage: 200 MG, DAILY (1/D)
     Route: 048
  18. ATIVAN [Concomitant]
     Dosage: 2 MG, 2/D

REACTIONS (6)
  - EPISTAXIS [None]
  - TYPE 2 DIABETES MELLITUS [None]
  - WEIGHT INCREASED [None]
  - HYPERTRIGLYCERIDAEMIA [None]
  - OVERDOSE [None]
  - HYPERCHOLESTEROLAEMIA [None]
